FAERS Safety Report 6441874-2 (Version None)
Quarter: 2009Q4

REPORT INFORMATION
  Report Type: 
  Country: None (occurrence: None)
  Receive Date: 20091116
  Receipt Date: 20091102
  Transmission Date: 20100525
  Serious: Yes (Other)
  Sender: FDA-Public Use
  Company Number: US-CELGENEUS-163-21880-09110366

PATIENT
  Sex: Female

DRUGS (5)
  1. REVLIMID [Suspect]
     Indication: MULTIPLE MYELOMA
     Route: 048
     Dates: start: 20090101, end: 20090101
  2. REVLIMID [Suspect]
     Dosage: 20MG-25MG
     Route: 048
     Dates: start: 20071001
  3. REVLIMID [Suspect]
     Route: 048
     Dates: start: 20080201
  4. REVLIMID [Suspect]
     Route: 048
     Dates: start: 20080901
  5. REVLIMID [Suspect]
     Route: 048
     Dates: start: 20091001

REACTIONS (2)
  - BREAST CANCER [None]
  - BREAST CANCER FEMALE [None]
